FAERS Safety Report 10076797 (Version 3)
Quarter: 2014Q2

REPORT INFORMATION
  Report Type: Spontaneous
  Country: JP (occurrence: JP)
  Receive Date: 20140414
  Receipt Date: 20140610
  Transmission Date: 20141212
  Serious: Yes (Death, Life-Threatening, Hospitalization)
  Sender: FDA-Public Use
  Company Number: JP-BRISTOL-MYERS SQUIBB COMPANY-20611752

PATIENT
  Age: 80 Year
  Sex: Male
  Weight: 64 kg

DRUGS (23)
  1. ELIQUIS [Suspect]
     Indication: ATRIAL FIBRILLATION
     Route: 048
     Dates: start: 20140306, end: 20140311
  2. XARELTO [Interacting]
     Indication: THROMBOSIS PROPHYLAXIS
     Route: 048
     Dates: start: 20130712, end: 20140306
  3. RENIVACE [Interacting]
     Route: 048
     Dates: start: 20140306, end: 20140311
  4. PIMOBENDAN [Concomitant]
     Route: 048
     Dates: start: 20140306, end: 20140311
  5. ALDACTONE A [Concomitant]
     Route: 048
     Dates: start: 20140306, end: 20140311
  6. MEXITIL [Concomitant]
     Route: 048
     Dates: start: 20140306, end: 20140311
  7. DIGOXIN [Concomitant]
     Route: 048
     Dates: start: 20140306, end: 20140311
  8. HARNAL [Concomitant]
     Route: 048
     Dates: start: 20140306, end: 20140311
  9. WARFARIN [Concomitant]
     Dates: start: 201402
  10. KALGUT [Concomitant]
     Dates: start: 20130712, end: 20140306
  11. URIEF [Concomitant]
     Dates: start: 20130712, end: 20140306
  12. OLMESARTAN MEDOXOMIL [Concomitant]
     Dates: start: 20130712, end: 20140306
  13. AZELNIDIPINE [Concomitant]
     Dates: start: 20130712, end: 20140306
  14. CARDENALIN [Concomitant]
     Dates: start: 20130712, end: 20140306
  15. LOCHOL [Concomitant]
     Dates: start: 20130712, end: 20140306
  16. FLUITRAN [Concomitant]
     Dates: start: 20130712, end: 20140306
  17. SIGMART [Concomitant]
     Dates: start: 20130712, end: 20140306
  18. NEXIUM [Concomitant]
     Dates: start: 20130712, end: 20140306
  19. MUCODYNE [Concomitant]
     Dates: start: 20130712, end: 20140306
  20. MAGMITT [Concomitant]
     Dates: start: 20130712, end: 20140306
  21. BIFIDOBACTERIUM BIFIDUM [Concomitant]
     Dates: start: 20130712, end: 20140306
  22. FRANDOL [Concomitant]
     Dates: start: 20130712, end: 20140306
  23. FRANDOL TAPE S [Concomitant]
     Dates: start: 20130712, end: 20140306

REACTIONS (5)
  - Disseminated intravascular coagulation [Fatal]
  - Pneumonia [Fatal]
  - Pulmonary alveolar haemorrhage [Fatal]
  - Respiratory failure [Fatal]
  - Drug interaction [Unknown]
